FAERS Safety Report 7056824-8 (Version None)
Quarter: 2010Q4

REPORT INFORMATION
  Report Type: 
  Country: None (occurrence: None)
  Receive Date: 20101022
  Receipt Date: 20100408
  Transmission Date: 20110411
  Serious: No
  Sender: FDA-Public Use
  Company Number: A0854165A

PATIENT
  Age: 14 Year
  Sex: Female

DRUGS (2)
  1. DUAC [Suspect]
     Indication: ACNE
     Dosage: 1APP TWICE PER DAY
     Route: 061
     Dates: start: 20100317
  2. MINOCYCLINE HCL [Concomitant]

REACTIONS (3)
  - DRY SKIN [None]
  - HYPERAESTHESIA [None]
  - TANNING [None]
